FAERS Safety Report 6089899-3 (Version None)
Quarter: 2009Q1

REPORT INFORMATION
  Report Type: 
  Country: None (occurrence: None)
  Receive Date: 20090224
  Receipt Date: 20081121
  Transmission Date: 20090719
  Serious: No
  Sender: FDA-Public Use
  Company Number: US-ABBOTT-08P-163-0489156-00

PATIENT
  Sex: Female
  Weight: 68.1 kg

DRUGS (3)
  1. SIMCOR [Suspect]
     Indication: BLOOD CHOLESTEROL
     Dosage: 1000/20 MILLIGRAMS
     Dates: start: 20081107, end: 20081120
  2. ACETYLSALICYLIC ACID SRT [Concomitant]
     Indication: DRUG USE FOR UNKNOWN INDICATION
  3. HYZAAR [Concomitant]
     Indication: BLOOD PRESSURE
     Dosage: 50-12.5 EACH TAB
     Dates: start: 20050101

REACTIONS (1)
  - PRURITUS [None]
